FAERS Safety Report 9312797 (Version 2)
Quarter: 2013Q2

REPORT INFORMATION
  Report Type: Spontaneous
  Country: US (occurrence: US)
  Receive Date: 20130528
  Receipt Date: 20130624
  Transmission Date: 20140414
  Serious: No
  Sender: FDA-Public Use
  Company Number: US-009507513-1305USA015961

PATIENT
  Age: 64 Year
  Sex: Male
  Weight: 77.98 kg

DRUGS (2)
  1. CLARITIN [Suspect]
     Indication: SEASONAL ALLERGY
     Dosage: UNK, QD
     Route: 048
     Dates: start: 20130310, end: 20130324
  2. COUMADIN [Concomitant]
     Indication: HEART VALVE REPLACEMENT
     Dosage: UNK, UNKNOWN

REACTIONS (1)
  - Drug ineffective [Unknown]
